FAERS Safety Report 5819804-3 (Version None)
Quarter: 2008Q3

REPORT INFORMATION
  Report Type: 
  Country: None (occurrence: None)
  Receive Date: 20080723
  Receipt Date: 20080715
  Transmission Date: 20090109
  Serious: Yes (Other)
  Sender: FDA-Public Use
  Company Number: JP-PFIZER INC-2008059186

PATIENT
  Sex: Female

DRUGS (3)
  1. XALATAN [Suspect]
     Indication: NORMAL TENSION GLAUCOMA
     Dosage: DAILY DOSE:2DROP
     Route: 047
     Dates: start: 20080206, end: 20080702
  2. HYALEIN [Concomitant]
     Route: 047
  3. CYANOCOBALAMIN [Concomitant]
     Route: 047

REACTIONS (1)
  - CORNEAL PIGMENTATION [None]
